FAERS Safety Report 8780552 (Version 4)
Quarter: 2012Q4

REPORT INFORMATION
  Report Type: 
  Country: US (occurrence: US)
  Receive Date: 20120913
  Receipt Date: 20121026
  Transmission Date: 20130627
  Serious: Yes (Other)
  Sender: FDA-Public Use
  Company Number: US-PFIZER INC-2012219939

PATIENT
  Age: 75 Year
  Sex: Female
  Weight: 59 kg

DRUGS (2)
  1. CELEBREX [Suspect]
     Indication: POLYARTHRITIS
     Dosage: 200 mg
     Route: 048
  2. PREMARIN [Suspect]
     Dosage: UNK

REACTIONS (13)
  - Arthropathy [Unknown]
  - Gastric ulcer [Unknown]
  - Gastric cyst [Unknown]
  - Gastric polyps [Unknown]
  - Osteoporosis [Unknown]
  - Scoliosis [Unknown]
  - Fall [Unknown]
  - Spinal disorder [Unknown]
  - Bone disorder [Unknown]
  - Musculoskeletal disorder [Unknown]
  - Anxiety [Unknown]
  - Dyspepsia [Not Recovered/Not Resolved]
  - Pain [Unknown]
